FAERS Safety Report 7224865-3 (Version None)
Quarter: 2011Q1

REPORT INFORMATION
  Report Type: 
  Country: None (occurrence: None)
  Receive Date: 20110103
  Receipt Date: 20101227
  Transmission Date: 20110831
  Serious: Yes (Other)
  Sender: FDA-Public Use
  Company Number: 2010SP066229

PATIENT
  Age: 53 Year
  Sex: Female

DRUGS (1)
  1. RINDERON (BETAMETHASONE SODIUM PHOSPHATE) (BETAMETHASONE SODIUM PHOSPH [Suspect]
     Dates: start: 20091101, end: 20091201

REACTIONS (1)
  - PSYCHOTIC DISORDER [None]
